FAERS Safety Report 23893902 (Version 1)
Quarter: 2024Q2

REPORT INFORMATION
  Report Type: Other
  Country: DE (occurrence: None)
  Receive Date: 20240524
  Receipt Date: 20240524
  Transmission Date: 20240715
  Serious: No
  Sender: FDA-Public Use
  Company Number: DE-ROCHE-3567704

PATIENT
  Age: 39 Year
  Sex: Female

DRUGS (7)
  1. OCRELIZUMAB [Suspect]
     Active Substance: OCRELIZUMAB
     Indication: Relapsing multiple sclerosis
     Dosage: ONCE
     Route: 042
     Dates: start: 20240424
  2. PREDNISOLONE [Concomitant]
     Active Substance: PREDNISOLONE
     Dosage: DOSE FREQUENCY: ONCE
     Route: 042
     Dates: start: 20240424, end: 20240424
  3. PREDNISOLONE [Concomitant]
     Active Substance: PREDNISOLONE
     Dosage: DOSE FREQUENCY: ONCE
     Route: 042
     Dates: start: 20240508, end: 20240508
  4. DIMETINDENMALEAT [Concomitant]
     Dosage: DOSE FREQUENCY: ONCE
     Route: 042
     Dates: start: 20240424, end: 20240424
  5. DIMETINDENMALEAT [Concomitant]
     Dosage: DOSE FREQUENCY: ONCE
     Route: 042
     Dates: start: 20240508, end: 20240508
  6. ACETAMINOPHEN [Concomitant]
     Active Substance: ACETAMINOPHEN
     Dosage: DOSE FREQUENCY: ONCE
     Route: 042
     Dates: start: 20240424, end: 20240424
  7. ACETAMINOPHEN [Concomitant]
     Active Substance: ACETAMINOPHEN
     Dosage: DOSE FREQUENCY: ONCE
     Route: 042
     Dates: start: 20240508, end: 20240508

REACTIONS (1)
  - Oral herpes [Not Recovered/Not Resolved]

NARRATIVE: CASE EVENT DATE: 20240501
